FAERS Safety Report 7235332-5 (Version None)
Quarter: 2011Q1

REPORT INFORMATION
  Report Type: 
  Country: None (occurrence: None)
  Receive Date: 20110114
  Receipt Date: 20110114
  Transmission Date: 20110831
  Serious: Yes (Other)
  Sender: FDA-Public Use
  Company Number: None

PATIENT
  Sex: Female

DRUGS (1)
  1. GLEEVEC [Suspect]
     Dosage: 400MG DAILY PO 3 MONTHS AT DIFFERENT TIME
     Route: 048

REACTIONS (4)
  - SKIN DISCOLOURATION [None]
  - RASH GENERALISED [None]
  - PRURITUS [None]
  - DYSSTASIA [None]
